FAERS Safety Report 18717498 (Version 1)
Quarter: 2021Q1

REPORT INFORMATION
  Report Type: Spontaneous
  Country: US (occurrence: US)
  Receive Date: 20210107
  Receipt Date: 20210107
  Transmission Date: 20210419
  Serious: Yes (Hospitalization)
  Sender: FDA-Public Use
  Company Number: None

PATIENT
  Age: 64 Year
  Sex: Male
  Weight: 91.9 kg

DRUGS (1)
  1. PACLITAXEL (TAXOL) (673089) [Suspect]
     Active Substance: PACLITAXEL
     Dates: end: 20201221

REACTIONS (2)
  - SARS-CoV-2 test negative [None]
  - Oxygen saturation decreased [None]

NARRATIVE: CASE EVENT DATE: 20201226
